FAERS Safety Report 25137971 (Version 1)
Quarter: 2025Q1

REPORT INFORMATION
  Report Type: Spontaneous
  Country: US (occurrence: US)
  Receive Date: 20250329
  Receipt Date: 20250329
  Transmission Date: 20250409
  Serious: No
  Sender: ELI LILLY AND COMPANY
  Company Number: US-ELI_LILLY_AND_COMPANY-US202503022144

PATIENT

DRUGS (2)
  1. MOUNJARO [Suspect]
     Active Substance: TIRZEPATIDE
     Indication: Product used for unknown indication
     Route: 065
  2. OZEMPIC [Suspect]
     Active Substance: SEMAGLUTIDE
     Indication: Product used for unknown indication
     Route: 065

REACTIONS (14)
  - Gastrointestinal disorder [Unknown]
  - Headache [Unknown]
  - Mood swings [Unknown]
  - Blood glucose fluctuation [Unknown]
  - Sleep disorder [Unknown]
  - Urinary tract infection [Unknown]
  - Cystitis [Unknown]
  - Kidney infection [Unknown]
  - Palpitations [Unknown]
  - Taste disorder [Unknown]
  - Decreased appetite [Unknown]
  - Eructation [Unknown]
  - Nausea [Unknown]
  - Vomiting [Unknown]
